FAERS Safety Report 8050024-0 (Version None)
Quarter: 2012Q1

REPORT INFORMATION
  Report Type: 
  Country: None (occurrence: None)
  Receive Date: 20120117
  Receipt Date: 20110601
  Transmission Date: 20120608
  Serious: Yes (Hospitalization, Other)
  Sender: FDA-Public Use
  Company Number: BR-ELI_LILLY_AND_COMPANY-BR201106000709

PATIENT
  Age: 40 Year

DRUGS (2)
  1. EFFIENT [Suspect]
     Indication: PLATELET AGGREGATION INHIBITION
     Dosage: UNK, UNKNOWN
     Route: 048
     Dates: start: 20110501
  2. HEPARIN [Concomitant]

REACTIONS (2)
  - HAEMORRHAGE [None]
  - HOSPITALISATION [None]
